FAERS Safety Report 14788944 (Version 3)
Quarter: 2018Q2

REPORT INFORMATION
  Report Type: Spontaneous
  Country: GB (occurrence: GB)
  Receive Date: 20180423
  Receipt Date: 20180531
  Transmission Date: 20180711
  Serious: Yes (Other)
  Sender: FDA-Public Use
  Company Number: GB-AUROBINDO-AUR-APL-2018-021214

PATIENT
  Sex: Female

DRUGS (5)
  1. DICLOFENAC                         /00372302/ [Suspect]
     Active Substance: DICLOFENAC
     Indication: PRODUCT USED FOR UNKNOWN INDICATION
     Dosage: UNK
     Route: 065
  2. TRAMADOL. [Suspect]
     Active Substance: TRAMADOL
     Indication: PRODUCT USED FOR UNKNOWN INDICATION
     Dosage: UNK
     Route: 065
  3. AMITRIPTYLINE                      /00002202/ [Suspect]
     Active Substance: AMITRIPTYLINE
     Indication: PRODUCT USED FOR UNKNOWN INDICATION
     Dosage: UNK
     Route: 065
  4. TRAMADOL. [Suspect]
     Active Substance: TRAMADOL
     Dosage: UNK ()
     Route: 065
  5. PREGABALIN. [Suspect]
     Active Substance: PREGABALIN
     Indication: PRODUCT USED FOR UNKNOWN INDICATION
     Dosage: ()

REACTIONS (7)
  - Feeling abnormal [Unknown]
  - Suicidal ideation [Unknown]
  - Speech disorder [Unknown]
  - Vomiting [Unknown]
  - Loss of consciousness [Unknown]
  - Constipation [Unknown]
  - Amnesia [Not Recovered/Not Resolved]
